FAERS Safety Report 5339084-5 (Version None)
Quarter: 2007Q2

REPORT INFORMATION
  Report Type: 
  Country: None (occurrence: None)
  Receive Date: 20070330
  Receipt Date: 20061113
  Transmission Date: 20071010
  Serious: Yes (Life-Threatening)
  Sender: FDA-Public Use
  Company Number: 2006EN000195

PATIENT
  Sex: Female

DRUGS (1)
  1. ONCASPAR [Suspect]
     Indication: DRUG USE FOR UNKNOWN INDICATION

REACTIONS (2)
  - HAEMORRHAGE INTRACRANIAL [None]
  - INTRACRANIAL VENOUS SINUS THROMBOSIS [None]
